FAERS Safety Report 5479493-7 (Version None)
Quarter: 2007Q3

REPORT INFORMATION
  Report Type: 
  Country: None (occurrence: None)
  Receive Date: 20070913
  Receipt Date: 20070410
  Transmission Date: 20080115
  Serious: Yes (Other)
  Sender: FDA-Public Use
  Company Number: 35898

PATIENT
  Sex: Female
  Weight: 94.3482 kg

DRUGS (6)
  1. PACLITAXEL [Suspect]
     Indication: BREAST CANCER
     Dosage: 350 MG INTRAVENOUSLY OVER 3 HO
     Route: 042
     Dates: start: 20070325
  2. PEPCID [Concomitant]
  3. ANZEMET [Concomitant]
  4. DECADRON [Concomitant]
  5. BENADRYL [Concomitant]
  6. DIOVAN [Concomitant]

REACTIONS (2)
  - JAUNDICE [None]
  - LIVER FUNCTION TEST ABNORMAL [None]
